FAERS Safety Report 20955407 (Version 1)
Quarter: 2022Q2

REPORT INFORMATION
  Report Type: Spontaneous
  Country: US (occurrence: None)
  Receive Date: 20220614
  Receipt Date: 20220614
  Transmission Date: 20220721
  Serious: No
  Sender: FDA-Public Use
  Company Number: 2022A214310

PATIENT
  Sex: Female
  Weight: 83.5 kg

DRUGS (2)
  1. SYMBICORT [Suspect]
     Active Substance: BUDESONIDE\FORMOTEROL FUMARATE DIHYDRATE
     Indication: Asthma
     Dosage: 0/4.5 MCG, 2 INHALATIONS
     Route: 055
  2. SYMBICORT [Suspect]
     Active Substance: BUDESONIDE\FORMOTEROL FUMARATE DIHYDRATE
     Indication: Chronic obstructive pulmonary disease
     Dosage: 0/4.5 MCG, 2 INHALATIONS
     Route: 055

REACTIONS (3)
  - Malaise [Unknown]
  - Device delivery system issue [Unknown]
  - Drug dose omission by device [Unknown]
